FAERS Safety Report 9617808 (Version 1)
Quarter: 2013Q4

REPORT INFORMATION
  Report Type: Spontaneous
  Country: CA (occurrence: None)
  Receive Date: 20131009
  Receipt Date: 20131009
  Transmission Date: 20140711
  Serious: Yes (Hospitalization, Other)
  Sender: FDA-Public Use
  Company Number: FK201304322

PATIENT
  Age: 75 Year
  Sex: Male

DRUGS (3)
  1. CARBOPLATIN (MANUFACTURER UNKNOWN) (CARBOPLATIN) (CARBOPLATIN) [Suspect]
     Indication: NON-SMALL CELL LUNG CANCER STAGE III
  2. PACLITAXEL (MANUFACTURER UNKNOWN) (PACLITAXEL) (PACLITAXEL) [Suspect]
     Indication: NON-SMALL CELL LUNG CANCER STAGE III
  3. PACLITAXEL (MANUFACTURER UNKNOWN) (PACLITAXEL) (PACLITAXEL) [Suspect]

REACTIONS (1)
  - Cognitive disorder [None]
